FAERS Safety Report 10960770 (Version 1)
Quarter: 2015Q1

REPORT INFORMATION
  Report Type: Spontaneous
  Country: RU (occurrence: RU)
  Receive Date: 20150327
  Receipt Date: 20150327
  Transmission Date: 20150721
  Serious: Yes (Other)
  Sender: FDA-Public Use
  Company Number: RU-AMGEN-RUSSP2015026974

PATIENT
  Age: 55 Year
  Sex: Male

DRUGS (1)
  1. VECTIBIX [Suspect]
     Active Substance: PANITUMUMAB
     Indication: RECTAL CANCER
     Dosage: UNK, UNK
     Route: 065
     Dates: start: 2015

REACTIONS (3)
  - Body temperature increased [Unknown]
  - Perineal fistula [Unknown]
  - Suture related complication [Unknown]

NARRATIVE: CASE EVENT DATE: 2015
